FAERS Safety Report 13469876 (Version 1)
Quarter: 2017Q2

REPORT INFORMATION
  Report Type: Report from Study
  Country: None (occurrence: RO)
  Receive Date: 20170422
  Receipt Date: 20170422
  Transmission Date: 20170830
  Serious: Yes (Death)
  Sender: FDA-Public Use
  Company Number: RO-ABBVIE-17K-135-1951124-00

PATIENT
  Sex: Male

DRUGS (3)
  1. DUODOPA [Suspect]
     Active Substance: CARBIDOPA\LEVODOPA
     Indication: PARKINSON^S DISEASE
     Dosage: MD=9ML, CR=4ML, ED=2ML
     Route: 050
     Dates: start: 20121013, end: 20170420
  2. MADOPAR HBS [Concomitant]
     Active Substance: BENSERAZIDE HYDROCHLORIDE\LEVODOPA
     Indication: PARKINSON^S DISEASE
     Route: 048
  3. VIREGYT [Concomitant]
     Indication: PARKINSON^S DISEASE
     Route: 048

REACTIONS (2)
  - Respiratory failure [Fatal]
  - Pneumonia [Fatal]
